FAERS Safety Report 8240518-7 (Version None)
Quarter: 2012Q1

REPORT INFORMATION
  Report Type: 
  Country: None (occurrence: None)
  Receive Date: 20120328
  Receipt Date: 20120319
  Transmission Date: 20120608
  Serious: Yes (Hospitalization)
  Sender: FDA-Public Use
  Company Number: FR-EISAI INC-E3810-05396-SPO-FR

PATIENT
  Sex: Female
  Weight: 85 kg

DRUGS (13)
  1. MEDIATENSYL [Concomitant]
     Route: 065
  2. PIPRAM [Concomitant]
     Indication: URINARY TRACT INFECTION
     Route: 065
  3. BISOPROLOL FUMARATE [Concomitant]
     Route: 065
  4. LEVOTHYROXINE SODIUM [Concomitant]
     Route: 065
  5. APPROVEL [Concomitant]
     Route: 065
  6. ALPRAZOLAM [Concomitant]
     Route: 065
  7. MORPHINE SULFATE [Concomitant]
     Route: 065
  8. ASPIRIN [Concomitant]
     Route: 065
  9. RABEPRAZOLE SODIUM [Suspect]
     Indication: PROPHYLAXIS
     Route: 048
  10. ROCALTROL [Concomitant]
     Route: 065
  11. ALLOPURINOL [Concomitant]
     Route: 065
  12. FLUOXETINE [Interacting]
     Indication: DEPRESSION
     Route: 048
  13. CLACIDIA [Concomitant]
     Route: 065

REACTIONS (4)
  - DRUG INTERACTION [None]
  - HYPONATRAEMIA [None]
  - OEDEMA PERIPHERAL [None]
  - WEIGHT INCREASED [None]
